FAERS Safety Report 23069048 (Version 2)
Quarter: 2025Q4

REPORT INFORMATION
  Report Type: Spontaneous
  Country: US (occurrence: None)
  Receive Date: 20231016
  Receipt Date: 20251027
  Transmission Date: 20260118
  Serious: No
  Sender: INCYTE
  Company Number: US-INCYTE CORPORATION-2023IN010425

PATIENT
  Age: 89 Year

DRUGS (2)
  1. JAKAFI [Suspect]
     Active Substance: RUXOLITINIB
     Indication: Product used for unknown indication
     Dosage: 10 MILLIGRAM, BID
  2. JAKAFI [Suspect]
     Active Substance: RUXOLITINIB
     Dosage: 10 MILLIGRAM, BID

REACTIONS (3)
  - Pain [Unknown]
  - Nausea [Unknown]
  - Asthenia [Unknown]
